FAERS Safety Report 4425837-4 (Version None)
Quarter: 2004Q3

REPORT INFORMATION
  Report Type: 
  Country: None (occurrence: None)
  Receive Date: 20040810
  Receipt Date: 20040728
  Transmission Date: 20050211
  Serious: Yes (Death, Hospitalization, Other)
  Sender: FDA-Public Use
  Company Number: 2004046342

PATIENT
  Age: 75 Year
  Sex: Female

DRUGS (5)
  1. SERTRALINE HYDROCHLORIDE [Suspect]
     Indication: DEPRESSION
     Dosage: 50 MG (50 MG, 1 IN 1 D), ORAL
     Route: 048
     Dates: start: 20040401, end: 20040401
  2. CALCIUM CARBONATE (CALCIUM CARBONATE) [Concomitant]
  3. CALCITRIOL [Concomitant]
  4. LOSARTAN (LOSARTAN) [Concomitant]
  5. NIFEDIPINE [Concomitant]

REACTIONS (5)
  - ATHETOSIS [None]
  - DYSTONIA [None]
  - HIP FRACTURE [None]
  - METABOLIC ACIDOSIS [None]
  - METABOLIC ENCEPHALOPATHY [None]
